FAERS Safety Report 24958448 (Version 1)
Quarter: 2025Q1

REPORT INFORMATION
  Report Type: Spontaneous
  Country: CN (occurrence: CN)
  Receive Date: 20250212
  Receipt Date: 20250212
  Transmission Date: 20250409
  Serious: Yes (Other)
  Sender: ROCHE
  Company Number: CN-ROCHE-10000200967

PATIENT
  Age: 68 Year
  Sex: Female

DRUGS (3)
  1. RITUXIMAB [Suspect]
     Active Substance: RITUXIMAB
     Indication: Diffuse large B-cell lymphoma
     Route: 065
  2. POLATUZUMAB VEDOTIN [Suspect]
     Active Substance: POLATUZUMAB VEDOTIN
     Indication: Diffuse large B-cell lymphoma
     Route: 065
  3. PREDNISONE ACETATE [Concomitant]
     Active Substance: PREDNISONE ACETATE

REACTIONS (49)
  - Hyperpyrexia [Unknown]
  - Chills [Unknown]
  - Lymphoma [Unknown]
  - Breast mass [Unknown]
  - Sinusitis [Unknown]
  - Pulpitis dental [Unknown]
  - Thyroid disorder [Unknown]
  - Lymphoid tissue hyperplasia [Unknown]
  - Bronchiolitis [Unknown]
  - Granuloma [Unknown]
  - Inflammation [Unknown]
  - Arteriosclerosis [Unknown]
  - Pleural effusion [Unknown]
  - Hiatus hernia [Unknown]
  - Hepatic steatosis [Unknown]
  - Haemorrhoids [Unknown]
  - Nodule [Unknown]
  - Injection site granuloma [Unknown]
  - Spinal osteoarthritis [Unknown]
  - Enostosis [Unknown]
  - Alanine aminotransferase increased [Unknown]
  - Aspartate aminotransferase increased [Unknown]
  - Protein total decreased [Unknown]
  - Blood albumin decreased [Unknown]
  - Gamma-glutamyltransferase increased [Unknown]
  - Blood cholinesterase decreased [Unknown]
  - Blood uric acid increased [Unknown]
  - Beta 2 microglobulin increased [Unknown]
  - Blood chloride increased [Unknown]
  - Blood urea increased [Unknown]
  - Blood glucose increased [Unknown]
  - Carbon dioxide decreased [Unknown]
  - Blood lactate dehydrogenase increased [Unknown]
  - Blood creatine phosphokinase decreased [Unknown]
  - Alpha hydroxybutyrate dehydrogenase decreased [Unknown]
  - Serum amyloid A protein increased [Unknown]
  - Red blood cell count decreased [Unknown]
  - Haemoglobin decreased [Unknown]
  - Haematocrit decreased [Unknown]
  - Mean cell volume decreased [Unknown]
  - Mean cell haemoglobin decreased [Unknown]
  - Red cell distribution width increased [Unknown]
  - Platelet count decreased [Unknown]
  - Lymphocyte count decreased [Unknown]
  - Eosinophil count decreased [Unknown]
  - Lymphocyte percentage decreased [Unknown]
  - Neutrophil percentage decreased [Unknown]
  - Eosinophil percentage decreased [Unknown]
  - Plateletcrit decreased [Unknown]

NARRATIVE: CASE EVENT DATE: 20250123
